FAERS Safety Report 25982080 (Version 2)
Quarter: 2025Q4

REPORT INFORMATION
  Report Type: Spontaneous
  Country: US (occurrence: US)
  Receive Date: 20251031
  Receipt Date: 20251125
  Transmission Date: 20260118
  Serious: No
  Sender: BIOGEN
  Company Number: US-BIOGEN-2088388

PATIENT
  Age: 61 Year
  Sex: Female

DRUGS (1)
  1. TYSABRI [Suspect]
     Active Substance: NATALIZUMAB
     Indication: Multiple sclerosis

REACTIONS (9)
  - COVID-19 [Unknown]
  - Gait disturbance [Unknown]
  - Balance disorder [Unknown]
  - Urinary tract infection [Unknown]
  - Memory impairment [Unknown]
  - Multiple sclerosis [Recovering/Resolving]
  - Back injury [Recovering/Resolving]
  - Road traffic accident [Recovered/Resolved]
  - Joint injury [Recovering/Resolving]

NARRATIVE: CASE EVENT DATE: 20250921
